FAERS Safety Report 15042847 (Version 1)
Quarter: 2018Q2

REPORT INFORMATION
  Report Type: Spontaneous
  Country: US (occurrence: US)
  Receive Date: 20180531
  Receipt Date: 20180531
  Transmission Date: 20180711
  Serious: Yes (Disabling)
  Sender: FDA-Public Use
  Company Number: None

PATIENT
  Age: 76 Year
  Sex: Female
  Weight: 58.97 kg

DRUGS (8)
  1. CITRACAL CALCIUM + D3 [Concomitant]
  2. LISINOPRIL. [Concomitant]
     Active Substance: LISINOPRIL
  3. VITAMIN C [Concomitant]
     Active Substance: ASCORBIC ACID
  4. COQ10 [Concomitant]
     Active Substance: UBIDECARENONE
  5. ONE A DAY WOMENS MULTIVIT [Concomitant]
  6. BLUEBONNET LIQUID CALCIUM MAGNESIUM CITRATE PLUS VIT D3 [Concomitant]
  7. LOVASTATIN. [Concomitant]
     Active Substance: LOVASTATIN
  8. PROLIA [Suspect]
     Active Substance: DENOSUMAB
     Indication: OSTEOPOROSIS
     Dosage: ?          QUANTITY:1 DF DOSAGE FORM;OTHER FREQUENCY:1 SHOT EVERY 6 MOS;OTHER ROUTE:INJECTION N UPPER RIGHT THIGH?
     Dates: start: 20170822, end: 20170822

REACTIONS (1)
  - Pain in extremity [None]

NARRATIVE: CASE EVENT DATE: 20170822
